FAERS Safety Report 8300385-X (Version None)
Quarter: 2012Q2

REPORT INFORMATION
  Report Type: 
  Country: None (occurrence: None)
  Receive Date: 20120417
  Receipt Date: 20120402
  Transmission Date: 20120825
  Serious: Yes (Other)
  Sender: FDA-Public Use
  Company Number: 217159

PATIENT
  Age: 50 Year
  Sex: Female

DRUGS (4)
  1. PROGETERONE (PROGESTERONE) (TABLET) [Concomitant]
  2. CALCIPOTRIENE AND BETAMETHASONE DIPROPIONATE [Suspect]
     Indication: PSORIASIS
     Dosage: (1 IN 1 D), TOPICAL
     Route: 061
  3. ESTROGEN (ESTROGEN) (TABLET) [Concomitant]
  4. VECTICAL [Suspect]
     Indication: PSORIASIS
     Dosage: TOPICAL
     Route: 061
     Dates: start: 20100928, end: 20120125

REACTIONS (2)
  - DIARRHOEA [None]
  - WEIGHT DECREASED [None]
